FAERS Safety Report 14287618 (Version 1)
Quarter: 2017Q4

REPORT INFORMATION
  Report Type: Spontaneous
  Country: GB (occurrence: GB)
  Receive Date: 20171214
  Receipt Date: 20171214
  Transmission Date: 20180321
  Serious: Yes (Other)
  Sender: FDA-Public Use
  Company Number: GB-FRESENIUS KABI-FK201710690

PATIENT

DRUGS (15)
  1. TOPOTECAN [Suspect]
     Active Substance: TOPOTECAN HYDROCHLORIDE
     Indication: DESMOPLASTIC SMALL ROUND CELL TUMOUR
     Route: 065
  2. GEMCITABINE [Suspect]
     Active Substance: GEMCITABINE\GEMCITABINE HYDROCHLORIDE
     Indication: DESMOPLASTIC SMALL ROUND CELL TUMOUR
     Route: 065
  3. PEG-IRINOTECAN [Suspect]
     Active Substance: ETIRINOTECAN PEGOL
     Indication: DESMOPLASTIC SMALL ROUND CELL TUMOUR
     Route: 065
  4. ONDANSETRON [Suspect]
     Active Substance: ONDANSETRON
     Indication: PRODUCT USED FOR UNKNOWN INDICATION
     Route: 065
  5. CYCLOPHOSPHAMIDE. [Suspect]
     Active Substance: CYCLOPHOSPHAMIDE
     Indication: DESMOPLASTIC SMALL ROUND CELL TUMOUR
     Route: 065
  6. MELATONIN [Suspect]
     Active Substance: MELATONIN
     Indication: PRODUCT USED FOR UNKNOWN INDICATION
  7. PAZOPANIB [Concomitant]
     Active Substance: PAZOPANIB
     Indication: PRODUCT USED FOR UNKNOWN INDICATION
  8. DOXORUBICIN [Concomitant]
     Active Substance: DOXORUBICIN
     Indication: DESMOPLASTIC SMALL ROUND CELL TUMOUR
  9. VINORELBINE [Suspect]
     Active Substance: VINORELBINE\VINORELBINE TARTRATE
     Indication: DESMOPLASTIC SMALL ROUND CELL TUMOUR
  10. CYCLIZINE [Suspect]
     Active Substance: CYCLIZINE
     Indication: PRODUCT USED FOR UNKNOWN INDICATION
  11. ACTINOMYCIN D [Concomitant]
     Active Substance: DACTINOMYCIN
     Indication: DESMOPLASTIC SMALL ROUND CELL TUMOUR
  12. TEMOZOLOMIDE. [Suspect]
     Active Substance: TEMOZOLOMIDE
     Indication: DESMOPLASTIC SMALL ROUND CELL TUMOUR
  13. SEPTRIN [Suspect]
     Active Substance: SULFAMETHOXAZOLE\TRIMETHOPRIM
     Indication: PRODUCT USED FOR UNKNOWN INDICATION
     Route: 065
  14. VINCRISTINE [Suspect]
     Active Substance: VINCRISTINE
     Indication: DESMOPLASTIC SMALL ROUND CELL TUMOUR
  15. DOCETAXEL (MANUFACTURER UNKNOWN) [Suspect]
     Active Substance: DOCETAXEL
     Indication: DESMOPLASTIC SMALL ROUND CELL TUMOUR
     Route: 065

REACTIONS (4)
  - Desmoplastic small round cell tumour [Unknown]
  - Ascites [Recovering/Resolving]
  - Drug effect incomplete [Unknown]
  - Malignant neoplasm progression [Unknown]

NARRATIVE: CASE EVENT DATE: 2017
